FAERS Safety Report 24644500 (Version 1)
Quarter: 2024Q4

REPORT INFORMATION
  Report Type: Spontaneous
  Country: US (occurrence: US)
  Receive Date: 20241121
  Receipt Date: 20241121
  Transmission Date: 20250115
  Serious: Yes (Hospitalization)
  Sender: STRIDES
  Company Number: US-STRIDES ARCOLAB LIMITED-2024SP015029

PATIENT
  Age: 34 Year
  Sex: Female

DRUGS (3)
  1. CABERGOLINE [Suspect]
     Active Substance: CABERGOLINE
     Indication: Prolactin-producing pituitary tumour
     Dosage: 0.5 MILLIGRAM, 2 TIMES A WEEK
     Route: 065
  2. CABERGOLINE [Suspect]
     Active Substance: CABERGOLINE
     Dosage: 0.75 MILLIGRAM, 2 TIMES A WEEK
     Route: 065
  3. CABERGOLINE [Suspect]
     Active Substance: CABERGOLINE
     Dosage: 0.75 MILLIGRAM, 2 TIMES A WEEK
     Route: 065

REACTIONS (3)
  - Brain herniation [Unknown]
  - Encephalocele [Unknown]
  - Idiopathic intracranial hypertension [Unknown]
